FAERS Safety Report 4264594-1 (Version None)
Quarter: 2004Q1

REPORT INFORMATION
  Report Type: 
  Country: None (occurrence: None)
  Receive Date: 20040102
  Receipt Date: 20031221
  Transmission Date: 20041129
  Serious: Yes (Hospitalization)
  Sender: FDA-Public Use
  Company Number: 03P-087-0242662-00

PATIENT
  Age: 57 Year
  Sex: Male

DRUGS (8)
  1. KALETRA [Suspect]
     Indication: HIV INFECTION
     Dosage: 6 CAPSULE, 1 IN 1 D, PER ORAL
     Route: 048
     Dates: start: 20020401
  2. STAVUDINE [Suspect]
     Indication: HIV INFECTION
     Dosage: 60 MG, 1 IN 1 D, PER ORAL
     Route: 048
     Dates: start: 20020306
  3. EFAVIRENZ [Suspect]
     Indication: HIV INFECTION
     Dosage: 600 MG, 1 IN 1 D, PER ORAL
     Route: 048
     Dates: start: 20020314
  4. DIDANOSINE [Concomitant]
  5. PENTAMIDINE ISETHIONATE [Concomitant]
  6. LOSARTAN POTASSIUM [Concomitant]
  7. SPIRONOLACTONE [Concomitant]
  8. FUROSEMIDE [Concomitant]

REACTIONS (2)
  - CARDIAC FAILURE CONGESTIVE [None]
  - HYPERLIPIDAEMIA [None]
